FAERS Safety Report 8764493 (Version 2)
Quarter: 2014Q4

REPORT INFORMATION
  Report Type: Spontaneous
  Country: US (occurrence: US)
  Receive Date: 20120831
  Receipt Date: 20141111
  Transmission Date: 20150529
  Serious: No
  Sender: FDA-Public Use
  Company Number: US-ASTRAZENECA-2012SE58060

PATIENT
  Age: 65 Year
  Sex: Male

DRUGS (14)
  1. PREVACID [Concomitant]
     Active Substance: LANSOPRAZOLE
  2. H2 BLOCKERS [Concomitant]
     Active Substance: UNSPECIFIED INGREDIENT
  3. ASA [Concomitant]
     Active Substance: ASPIRIN
  4. LISINOPRIL. [Suspect]
     Active Substance: LISINOPRIL
     Route: 048
  5. OMEPRAZOLE. [Suspect]
     Active Substance: OMEPRAZOLE
     Route: 048
  6. AMLODIPINE [Concomitant]
     Active Substance: AMLODIPINE BESYLATE
  7. ATORVASTATIN [Concomitant]
     Active Substance: ATORVASTATIN
  8. LOSARTAN [Concomitant]
     Active Substance: LOSARTAN
  9. ISOSORB DINITRATE [Concomitant]
  10. FISH OIL [Concomitant]
     Active Substance: FISH OIL
  11. ACIPHEX [Concomitant]
     Active Substance: RABEPRAZOLE SODIUM
  12. NEXIUM [Concomitant]
     Active Substance: ESOMEPRAZOLE MAGNESIUM
  13. PANTOPRAZOLE [Concomitant]
     Active Substance: PANTOPRAZOLE SODIUM
  14. VITAMIN B12 [Concomitant]
     Active Substance: CYANOCOBALAMIN

REACTIONS (3)
  - Hiatus hernia [Unknown]
  - Drug ineffective [Unknown]
  - Drug intolerance [Unknown]
